FAERS Safety Report 15192515 (Version 1)
Quarter: 2018Q3

REPORT INFORMATION
  Report Type: Report from Study
  Country: GB (occurrence: GB)
  Receive Date: 20180725
  Receipt Date: 20180725
  Transmission Date: 20181010
  Serious: Yes (Death, Life-Threatening, Other)
  Sender: FDA-Public Use
  Company Number: GB-AUROBINDO-AUR-APL-2018-035233

PATIENT
  Age: 17 Year
  Sex: Female

DRUGS (1)
  1. PARACETAMOL [Suspect]
     Active Substance: ACETAMINOPHEN
     Indication: PRODUCT USED FOR UNKNOWN INDICATION
     Dosage: UNK
     Route: 065
     Dates: start: 2010

REACTIONS (10)
  - Pulmonary embolism [Unknown]
  - Overdose [Unknown]
  - Bile duct stenosis [Unknown]
  - Pneumothorax [Unknown]
  - Clostridium difficile colitis [Unknown]
  - Acute hepatic failure [Unknown]
  - Keloid scar [Unknown]
  - Intra-abdominal haemorrhage [Unknown]
  - Transplant failure [Fatal]
  - Haemothorax [Unknown]

NARRATIVE: CASE EVENT DATE: 2010
